FAERS Safety Report 20428117 (Version 2)
Quarter: 2022Q1

REPORT INFORMATION
  Report Type: Spontaneous
  Country: US (occurrence: US)
  Receive Date: 20220204
  Receipt Date: 20220217
  Transmission Date: 20220423
  Serious: No
  Sender: FDA-Public Use
  Company Number: US-AMGEN-USASP2022018372

PATIENT

DRUGS (1)
  1. CORLANOR [Suspect]
     Active Substance: IVABRADINE HYDROCHLORIDE
     Indication: Postural orthostatic tachycardia syndrome
     Dosage: UNK UNK, BID
     Route: 065

REACTIONS (4)
  - Abdominal pain [Unknown]
  - Fatigue [Unknown]
  - Gluten sensitivity [Unknown]
  - Off label use [Unknown]
